FAERS Safety Report 8804923 (Version 1)
Quarter: 2012Q4

REPORT INFORMATION
  Report Type: Spontaneous
  Country: US (occurrence: None)
  Receive Date: 20120918
  Receipt Date: 20120918
  Transmission Date: 20130627
  Serious: No
  Sender: FDA-Public Use
  Company Number: None

PATIENT
  Age: 67 Year
  Sex: Female

DRUGS (2)
  1. VOLTAREN [Suspect]
     Indication: PAIN IN TOE
     Dosage: dab   4x^s day top
  2. VOLTAREN [Suspect]
     Indication: ARTHRITIS
     Dosage: dab   4x^s day top

REACTIONS (2)
  - Abdominal pain upper [None]
  - Pain in extremity [None]
